FAERS Safety Report 17601967 (Version 1)
Quarter: 2020Q1

REPORT INFORMATION
  Report Type: Spontaneous
  Country: IN (occurrence: IN)
  Receive Date: 20200331
  Receipt Date: 20200331
  Transmission Date: 20200409
  Serious: Yes (Other)
  Sender: FDA-Public Use
  Company Number: IN-SUN PHARMACEUTICAL INDUSTRIES LTD-2020R1-242025

PATIENT
  Age: 28 Year
  Sex: Female
  Weight: 65 kg

DRUGS (7)
  1. METOCLOPRAMIDE. [Suspect]
     Active Substance: METOCLOPRAMIDE
     Indication: POSTPARTUM HYPOPITUITARISM
     Dosage: 10 MILLIGRAM, QD
     Route: 065
  2. HYDROCORTISONE. [Suspect]
     Active Substance: HYDROCORTISONE
     Indication: POSTPARTUM HYPOPITUITARISM
     Dosage: 10 MILLIGRAM, DAILY
     Route: 065
  3. BUPIVACAINE. [Suspect]
     Active Substance: BUPIVACAINE
     Indication: ANAESTHESIA
     Dosage: 0.5 PERCENT
     Route: 065
  4. LIGNOCAINE [Suspect]
     Active Substance: LIDOCAINE HYDROCHLORIDE
     Indication: ANAESTHESIA
     Dosage: 0.5 ML OF 2PERCENT
     Route: 065
  5. FENTANYL. [Suspect]
     Active Substance: FENTANYL
     Indication: POSTPARTUM HYPOPITUITARISM
     Dosage: 20 MCG  (0.4 ML)
     Route: 037
  6. RANITIDINE. [Suspect]
     Active Substance: RANITIDINE
     Indication: POSTPARTUM HYPOPITUITARISM
     Dosage: 150 MG
     Route: 065
  7. THYROXINE [Suspect]
     Active Substance: LEVOTHYROXINE
     Indication: POSTPARTUM HYPOPITUITARISM
     Dosage: 88 MICROGRAM, DAILY
     Route: 065

REACTIONS (3)
  - Exposure during pregnancy [Unknown]
  - Hypotension [Unknown]
  - Live birth [Unknown]
